FAERS Safety Report 20086658 (Version 2)
Quarter: 2021Q4

REPORT INFORMATION
  Report Type: Spontaneous
  Country: BR (occurrence: BR)
  Receive Date: 20211118
  Receipt Date: 20211213
  Transmission Date: 20220303
  Serious: Yes (Death, Life-Threatening, Hospitalization)
  Sender: FDA-Public Use
  Company Number: BR-MYLANLABS-2021M1085218

PATIENT
  Age: 68 Year
  Sex: Male
  Weight: 53 kg

DRUGS (25)
  1. GEMCITABINE [Suspect]
     Active Substance: GEMCITABINE
     Indication: Chronic lymphocytic leukaemia
     Dosage: 750 MILLIGRAM PER SQUARE METRE (EVERY 21 DAYS)
     Route: 042
     Dates: start: 201608, end: 201610
  2. GEMCITABINE [Suspect]
     Active Substance: GEMCITABINE
     Indication: B-cell small lymphocytic lymphoma
  3. OXALIPLATIN [Suspect]
     Active Substance: OXALIPLATIN
     Indication: Chronic lymphocytic leukaemia
     Dosage: 100 MILLIGRAM PER SQUARE METRE, (EVERY 21 DAYS)
     Route: 042
     Dates: start: 201911, end: 201912
  4. OXALIPLATIN [Suspect]
     Active Substance: OXALIPLATIN
     Indication: B-cell small lymphocytic lymphoma
  5. CHLORAMBUCIL [Suspect]
     Active Substance: CHLORAMBUCIL
     Indication: Chronic lymphocytic leukaemia
     Dosage: 2 MILLIGRAM, QD
     Route: 048
     Dates: start: 201610, end: 201801
  6. CHLORAMBUCIL [Suspect]
     Active Substance: CHLORAMBUCIL
     Indication: B-cell small lymphocytic lymphoma
  7. PREDNISONE [Suspect]
     Active Substance: PREDNISONE
     Indication: Chronic lymphocytic leukaemia
     Dosage: 2 MILLIGRAM, QD
     Route: 048
     Dates: start: 201610, end: 201801
  8. PREDNISONE [Suspect]
     Active Substance: PREDNISONE
     Indication: B-cell small lymphocytic lymphoma
  9. RITUXIMAB [Suspect]
     Active Substance: RITUXIMAB
     Indication: Chronic lymphocytic leukaemia
     Dosage: 2 MILLIGRAM, QD
     Route: 048
     Dates: start: 201610, end: 201801
  10. RITUXIMAB [Suspect]
     Active Substance: RITUXIMAB
     Indication: B-cell small lymphocytic lymphoma
  11. CYCLOPHOSPHAMIDE [Suspect]
     Active Substance: CYCLOPHOSPHAMIDE
     Indication: Chronic lymphocytic leukaemia
     Dosage: 750 MILLIGRAM PER SQUARE METRE (EVERY 21 DAYS)
     Route: 042
     Dates: start: 201608, end: 201610
  12. CYCLOPHOSPHAMIDE [Suspect]
     Active Substance: CYCLOPHOSPHAMIDE
     Indication: B-cell small lymphocytic lymphoma
  13. VINCRISTINE [Suspect]
     Active Substance: VINCRISTINE
     Indication: Chronic lymphocytic leukaemia
     Dosage: 750 MILLIGRAM PER SQUARE METRE (EVERY 21 DAYS)
     Route: 042
     Dates: start: 201608, end: 201610
  14. VINCRISTINE [Suspect]
     Active Substance: VINCRISTINE
     Indication: B-cell small lymphocytic lymphoma
  15. IBRUTINIB [Suspect]
     Active Substance: IBRUTINIB
     Indication: Chronic lymphocytic leukaemia
     Dosage: 100 MILLIGRAM PER SQUARE METRE, (EVERY 21 DAYS)
     Route: 042
     Dates: start: 201911, end: 201912
  16. IBRUTINIB [Suspect]
     Active Substance: IBRUTINIB
     Indication: B-cell small lymphocytic lymphoma
     Dosage: 280 MILLIGRAM, QD
     Route: 065
     Dates: start: 20200204
  17. IBRUTINIB [Suspect]
     Active Substance: IBRUTINIB
     Dosage: 420 MILLIGRAM, QD
     Route: 065
     Dates: start: 202002, end: 20200407
  18. IBRUTINIB [Suspect]
     Active Substance: IBRUTINIB
     Dosage: UNK
     Route: 065
     Dates: start: 20200430
  19. AZITHROMYCIN [Concomitant]
     Active Substance: AZITHROMYCIN
     Indication: Product used for unknown indication
     Dosage: UNK
     Route: 065
  20. CLOVILLIN [Concomitant]
     Indication: Product used for unknown indication
     Dosage: UNK
     Route: 065
  21. PIPERACILLIN SODIUM\TAZOBACTAM SODIUM [Concomitant]
     Active Substance: PIPERACILLIN SODIUM\TAZOBACTAM SODIUM
     Indication: Product used for unknown indication
     Dosage: UNK
     Route: 065
  22. MEROPENEM [Concomitant]
     Active Substance: MEROPENEM
     Indication: Product used for unknown indication
     Dosage: UNK
     Route: 065
  23. METHYLPREDNISOLONE [Concomitant]
     Active Substance: METHYLPREDNISOLONE
     Indication: Product used for unknown indication
     Dosage: UNK
     Route: 065
  24. CLARITHROMYCIN [Concomitant]
     Active Substance: CLARITHROMYCIN
     Indication: Product used for unknown indication
     Dosage: UNK
     Route: 065
  25. CEFEPIME [Concomitant]
     Active Substance: CEFEPIME HYDROCHLORIDE
     Indication: Product used for unknown indication
     Dosage: UNK
     Route: 065

REACTIONS (6)
  - Depressed level of consciousness [Fatal]
  - COVID-19 [Recovered/Resolved]
  - Hypotension [Recovered/Resolved]
  - Hallucination [Recovered/Resolved]
  - Disorganised speech [Recovered/Resolved]
  - Pleural effusion [Recovered/Resolved]

NARRATIVE: CASE EVENT DATE: 20200401
